FAERS Safety Report 17611807 (Version 1)
Quarter: 2020Q2

REPORT INFORMATION
  Report Type: Spontaneous
  Country: FR (occurrence: FR)
  Receive Date: 20200401
  Receipt Date: 20200401
  Transmission Date: 20200713
  Serious: Yes (Other)
  Sender: FDA-Public Use
  Company Number: FR-MYLANLABS-2020M1032745

PATIENT
  Age: 70 Year
  Sex: Female

DRUGS (9)
  1. ATORVASTATINE                      /01326101/ [Concomitant]
     Active Substance: ATORVASTATIN
  2. JANUVIA [Concomitant]
     Active Substance: SITAGLIPTIN PHOSPHATE
  3. BISOCE [Concomitant]
     Active Substance: BISOPROLOL
  4. DIFFU K [Concomitant]
     Active Substance: POTASSIUM CHLORIDE
  5. KARDEGIC [Concomitant]
     Active Substance: ASPIRIN DL-LYSINE
  6. LASILIX                            /00032601/ [Interacting]
     Active Substance: FUROSEMIDE
     Indication: HYPERTENSION
     Dosage: 40 MILLIGRAM, QD
     Route: 048
     Dates: end: 20181127
  7. METFORMIN [Suspect]
     Active Substance: METFORMIN HYDROCHLORIDE
     Indication: DIABETES MELLITUS
     Dosage: 3000 MILLIGRAM, QD
     Route: 048
     Dates: end: 20181127
  8. PANTOPRAZOLE [Concomitant]
     Active Substance: PANTOPRAZOLE
  9. BRILIQUE [Concomitant]
     Active Substance: TICAGRELOR

REACTIONS (4)
  - Drug interaction [Unknown]
  - Lactic acidosis [Recovering/Resolving]
  - Renal tubular necrosis [Recovering/Resolving]
  - Overdose [Recovering/Resolving]

NARRATIVE: CASE EVENT DATE: 20181127
